FAERS Safety Report 16119578 (Version 1)
Quarter: 2019Q1

REPORT INFORMATION
  Report Type: Spontaneous
  Country: JP (occurrence: JP)
  Receive Date: 20190326
  Receipt Date: 20190326
  Transmission Date: 20190418
  Serious: Yes (Other)
  Sender: FDA-Public Use
  Company Number: JP-BAUSCH-BL-2019-008721

PATIENT
  Age: 61 Year
  Sex: Female

DRUGS (8)
  1. ETOPOSIDE. [Suspect]
     Active Substance: ETOPOSIDE
     Indication: HIGH-GRADE B-CELL LYMPHOMA
     Dosage: EPOCH THERAPY AS A SALVAGE CHEMOTHERAPY
     Route: 065
  2. DEXAMETHASONE. [Suspect]
     Active Substance: DEXAMETHASONE
     Indication: HIGH-GRADE B-CELL LYMPHOMA
     Dosage: AS A SECOND SALVAGE REGIMEN, 3 CYCLES OF GDP
     Route: 065
  3. VINCRISTINE [Suspect]
     Active Substance: VINCRISTINE
     Indication: HIGH-GRADE B-CELL LYMPHOMA
     Dosage: EPOCH THERAPY AS A SALVAGE CHEMOTHERAPY
     Route: 065
  4. DOXORUBICIN [Suspect]
     Active Substance: DOXORUBICIN
     Indication: HIGH-GRADE B-CELL LYMPHOMA
     Dosage: EPOCH THERAPY AS A SALVAGE CHEMOTHERAPY
     Route: 065
  5. CISPLATIN. [Suspect]
     Active Substance: CISPLATIN
     Indication: HIGH-GRADE B-CELL LYMPHOMA
     Dosage: GDP THERAPY AS A SECOND SALVAGE REGIMEN,3 CYCLES
     Route: 065
  6. PREDNISOLONE. [Suspect]
     Active Substance: PREDNISOLONE
     Indication: HIGH-GRADE B-CELL LYMPHOMA
     Dosage: EPOCH THERAPY AS A SALVAGE CHEMOTHERAPY
     Route: 065
  7. CYCLOPHOSPHAMIDE. [Suspect]
     Active Substance: CYCLOPHOSPHAMIDE
     Indication: HIGH-GRADE B-CELL LYMPHOMA
     Dosage: EPOCH THERAPY AS A SALVAGE CHEMOTHERAPY
     Route: 065
  8. GEMCITABINE [Suspect]
     Active Substance: GEMCITABINE\GEMCITABINE HYDROCHLORIDE
     Indication: HIGH-GRADE B-CELL LYMPHOMA
     Dosage: GDP THERAPY AS A SECOND SALVAGE REGIMEN, 3 CYCLES
     Route: 065

REACTIONS (4)
  - Anaemia [Unknown]
  - Neutropenia [Unknown]
  - Thrombocytopenia [Unknown]
  - Drug ineffective [Unknown]
